FAERS Safety Report 5777609-6 (Version None)
Quarter: 2008Q2

REPORT INFORMATION
  Report Type: 
  Country: None (occurrence: None)
  Receive Date: 20080618
  Receipt Date: 20080606
  Transmission Date: 20081010
  Serious: Yes (Other)
  Sender: FDA-Public Use
  Company Number: US-PFIZER INC-2008016777

PATIENT
  Sex: Female
  Weight: 86.6 kg

DRUGS (20)
  1. CHANTIX [Suspect]
     Indication: SMOKING CESSATION THERAPY
     Route: 048
     Dates: start: 20080130, end: 20080205
  2. CHANTIX [Suspect]
     Indication: NICOTINE DEPENDENCE
  3. MORPHINE SULFATE [Concomitant]
  4. FENTANYL CITRATE [Concomitant]
  5. ACTIQ [Concomitant]
     Dosage: DAILY DOSE:600MG-FREQ:1-2 DAILY
  6. CYMBALTA [Concomitant]
     Dosage: DAILY DOSE:60MG
  7. NAPROXEN [Concomitant]
     Dosage: DAILY DOSE:500MG-FREQ:1-2 DAILY
  8. FLEXERIL [Concomitant]
  9. AMBIEN [Concomitant]
     Dosage: DAILY DOSE:10MG
  10. FOSINOPRIL SODIUM [Concomitant]
     Dosage: DAILY DOSE:40MCG
  11. PREMARIN [Concomitant]
     Dosage: DAILY DOSE:.625MG
  12. HYDROCHLOROTHIAZIDE [Concomitant]
  13. ASPIRIN [Concomitant]
  14. VALIUM [Concomitant]
     Dosage: DAILY DOSE:5MG
  15. LIDODERM [Concomitant]
  16. THERMACARE HEATWRAPS [Concomitant]
  17. SENOKOT [Concomitant]
  18. AMITIZA [Concomitant]
     Dosage: DAILY DOSE:24MCG
  19. STOOL SOFTENER [Concomitant]
  20. ALL OTHER THERAPEUTIC PRODUCTS [Concomitant]

REACTIONS (7)
  - ACTIVITIES OF DAILY LIVING IMPAIRED [None]
  - CONFUSIONAL STATE [None]
  - FEAR [None]
  - HYPERHIDROSIS [None]
  - IMPAIRED DRIVING ABILITY [None]
  - MENTAL DISORDER [None]
  - MENTAL IMPAIRMENT [None]
